FAERS Safety Report 15748998 (Version 1)
Quarter: 2018Q4

REPORT INFORMATION
  Report Type: Spontaneous
  Country: RU (occurrence: RU)
  Receive Date: 20181221
  Receipt Date: 20181221
  Transmission Date: 20190205
  Serious: Yes (Other)
  Sender: FDA-Public Use
  Company Number: RU-CHEPLA-C20181761

PATIENT
  Age: 30 Year
  Sex: Female
  Weight: 55 kg

DRUGS (1)
  1. XENICAL [Suspect]
     Active Substance: ORLISTAT
     Dosage: SHE TAKES XENICAL ALREADY 1.5 YEAR 3 CAPSULES PER DAY
     Dates: end: 20181214

REACTIONS (3)
  - Anxiety [Unknown]
  - Product use in unapproved indication [Recovered/Resolved]
  - Insomnia [Unknown]
